FAERS Safety Report 5445737-0 (Version None)
Quarter: 2007Q3

REPORT INFORMATION
  Report Type: 
  Country: None (occurrence: None)
  Receive Date: 20070904
  Receipt Date: 20070822
  Transmission Date: 20080115
  Serious: Yes (Other)
  Sender: FDA-Public Use
  Company Number: 017693

PATIENT
  Age: 38 Year
  Sex: Female
  Weight: 68 kg

DRUGS (1)
  1. PLAN B [Suspect]
     Indication: CONTRACEPTION
     Dosage: 1 TABLET, Q12HR, ORAL
     Route: 048
     Dates: start: 20070816, end: 20070817

REACTIONS (3)
  - DENTAL OPERATION [None]
  - MENSTRUATION IRREGULAR [None]
  - METRORRHAGIA [None]
